FAERS Safety Report 18045920 (Version 5)
Quarter: 2020Q4

REPORT INFORMATION
  Report Type: Spontaneous
  Country: US (occurrence: US)
  Receive Date: 20200720
  Receipt Date: 20201103
  Transmission Date: 20210113
  Serious: Yes (Hospitalization, Other)
  Sender: FDA-Public Use
  Company Number: US-LEXICON PHARMACEUTICALS, INC-20-1606-00535

PATIENT
  Age: 46 Year
  Sex: Male

DRUGS (4)
  1. CHEMOTHERAPY [Concomitant]
     Active Substance: UNSPECIFIED INGREDIENT
  2. SANDOSTATIN [Concomitant]
     Active Substance: OCTREOTIDE ACETATE
  3. XERMELO [Suspect]
     Active Substance: TELOTRISTAT ETHYL
     Indication: NEUROENDOCRINE TUMOUR
     Dates: start: 20200530
  4. XERMELO [Suspect]
     Active Substance: TELOTRISTAT ETHYL

REACTIONS (13)
  - Heart valve incompetence [Unknown]
  - Dehydration [Recovered/Resolved]
  - Surgery [Unknown]
  - Metastases to bone [Unknown]
  - Constipation [Recovered/Resolved]
  - Diarrhoea [Unknown]
  - Nausea [Unknown]
  - Vomiting [Unknown]
  - Hepatic neoplasm [Unknown]
  - Ejection fraction decreased [Unknown]
  - Blood bilirubin increased [Not Recovered/Not Resolved]
  - Flatulence [Unknown]
  - Nausea [Unknown]

NARRATIVE: CASE EVENT DATE: 2020
